FAERS Safety Report 22799202 (Version 6)
Quarter: 2024Q1

REPORT INFORMATION
  Report Type: Report from Study
  Country: US (occurrence: US)
  Receive Date: 20230808
  Receipt Date: 20240313
  Transmission Date: 20240409
  Serious: Yes (Other)
  Sender: FDA-Public Use
  Company Number: US-JAZZ-2021-US-024176

PATIENT
  Age: 72 Year
  Sex: Female

DRUGS (13)
  1. XYREM [Suspect]
     Active Substance: SODIUM OXYBATE
     Indication: Narcolepsy
     Dosage: 3 GRAM, BID
     Dates: start: 200703, end: 200706
  2. XYREM [Suspect]
     Active Substance: SODIUM OXYBATE
     Indication: Cataplexy
     Dosage: DOSE ADJUSTMENTS
     Route: 048
     Dates: start: 200707, end: 201711
  3. XYREM [Suspect]
     Active Substance: SODIUM OXYBATE
     Indication: Somnolence
     Dosage: 3 GRAM, BID
     Route: 048
     Dates: start: 201711
  4. XYREM [Suspect]
     Active Substance: SODIUM OXYBATE
     Dosage: UNK
  5. XYREM [Suspect]
     Active Substance: SODIUM OXYBATE
     Dosage: TOOK 3 GRAM A NIGHT
  6. ALCOHOL [Suspect]
     Active Substance: ALCOHOL
     Indication: Product used for unknown indication
     Dosage: UNK
     Dates: start: 20151005
  7. ARMOUR THYROID [Concomitant]
     Active Substance: THYROID, PORCINE
     Indication: Product used for unknown indication
     Dosage: UNK
     Dates: start: 20151005
  8. LEXAPRO [Concomitant]
     Active Substance: ESCITALOPRAM OXALATE
     Indication: Product used for unknown indication
     Dosage: UNK
     Dates: start: 20151005
  9. NORCO [Concomitant]
     Active Substance: ACETAMINOPHEN\HYDROCODONE BITARTRATE
     Indication: Product used for unknown indication
     Dosage: UNK
     Dates: start: 20151005
  10. NALTREXONE HYDROCHLORIDE [Concomitant]
     Active Substance: NALTREXONE HYDROCHLORIDE
     Indication: Product used for unknown indication
     Dosage: UNK
     Dates: start: 20210101
  11. ESTRADIOL [Concomitant]
     Active Substance: ESTRADIOL
     Indication: Product used for unknown indication
     Dosage: UNK
     Dates: start: 20140101
  12. TESTOSTERONE [TESTOSTERONE CIPIONATE] [Concomitant]
     Indication: Product used for unknown indication
     Dosage: UNK
     Dates: start: 20240126
  13. AMBIEN [Concomitant]
     Active Substance: ZOLPIDEM TARTRATE
     Dosage: UNK
     Dates: start: 20240307

REACTIONS (13)
  - Cataract [Unknown]
  - Surgery [Unknown]
  - Somnambulism [Unknown]
  - Tremor [Unknown]
  - Fall [Unknown]
  - Lip injury [Unknown]
  - Product dose omission issue [Unknown]
  - Product container issue [Unknown]
  - Intentional product use issue [Unknown]
  - Product administration interrupted [Unknown]
  - Expired product administered [Unknown]
  - Off label use [Unknown]
  - Contraindicated product administered [Unknown]

NARRATIVE: CASE EVENT DATE: 20240223
